FAERS Safety Report 24955478 (Version 1)
Quarter: 2025Q1

REPORT INFORMATION
  Report Type: Spontaneous
  Country: US (occurrence: None)
  Receive Date: 20250211
  Receipt Date: 20250211
  Transmission Date: 20250408
  Serious: Yes (Hospitalization)
  Sender: FDA-CTU
  Company Number: None

PATIENT
  Sex: Male

DRUGS (2)
  1. TADALAFIL [Suspect]
     Active Substance: TADALAFIL
     Indication: Pulmonary arterial hypertension
     Dosage: FREQUENCY : DAILY;?
     Route: 048
     Dates: start: 202301
  2. OPSUMIT [Concomitant]
     Active Substance: MACITENTAN

REACTIONS (4)
  - Pulmonary arterial hypertension [None]
  - Condition aggravated [None]
  - Coronary artery bypass [None]
  - Therapy interrupted [None]
